FAERS Safety Report 8241371-8 (Version None)
Quarter: 2012Q1

REPORT INFORMATION
  Report Type: 
  Country: None (occurrence: None)
  Receive Date: 20120328
  Receipt Date: 20120320
  Transmission Date: 20120608
  Serious: Yes (Other)
  Sender: FDA-Public Use
  Company Number: PHHY2012DE024467

PATIENT
  Age: 70 Year
  Sex: Female

DRUGS (7)
  1. TERBINAFINE HCL [Suspect]
     Indication: TINEA INFECTION
     Dosage: UNK
     Dates: start: 20050101
  2. TORSEMIDE [Suspect]
     Dosage: UNK
  3. PHENPROCOUMON [Suspect]
     Dosage: UNK
  4. LOSARTAN POTASSIUM [Suspect]
     Dosage: UNK
  5. AMIODARONE HCL [Suspect]
  6. BISOPROLOL FUMARATE [Suspect]
  7. ASPIRIN [Suspect]

REACTIONS (5)
  - CUTANEOUS LUPUS ERYTHEMATOSUS [None]
  - SKIN LESION [None]
  - SKIN PLAQUE [None]
  - DERMATITIS [None]
  - ERYTHEMA [None]
